FAERS Safety Report 5208207-0 (Version None)
Quarter: 2007Q1

REPORT INFORMATION
  Report Type: 
  Country: None (occurrence: None)
  Receive Date: 20070115
  Receipt Date: 20070108
  Transmission Date: 20070707
  Serious: Yes (Hospitalization)
  Sender: FDA-Public Use
  Company Number: FR-GLAXOSMITHKLINE-B0453786A

PATIENT
  Age: 58 Year
  Sex: Female

DRUGS (4)
  1. AUGMENTIN '125' [Suspect]
     Indication: PYELONEPHRITIS
     Dosage: 1G THREE TIMES PER DAY
     Route: 048
     Dates: start: 20060722, end: 20060828
  2. AVLOCARDYL [Concomitant]
     Dosage: 160MG PER DAY
     Route: 048
     Dates: start: 20060810
  3. INIPOMP [Concomitant]
     Dosage: 20MG PER DAY
     Route: 048
     Dates: start: 20060804
  4. CONTRAMAL [Concomitant]
     Dosage: 150MG TWICE PER DAY
     Route: 048
     Dates: start: 20060818

REACTIONS (1)
  - NEUTROPENIA [None]
